FAERS Safety Report 8233865-6 (Version None)
Quarter: 2012Q1

REPORT INFORMATION
  Report Type: 
  Country: None (occurrence: None)
  Receive Date: 20120326
  Receipt Date: 20120314
  Transmission Date: 20120608
  Serious: Yes (Hospitalization)
  Sender: FDA-Public Use
  Company Number: US-ELI_LILLY_AND_COMPANY-US201201001389

PATIENT
  Sex: Female

DRUGS (2)
  1. FORTEO [Suspect]
     Indication: OSTEOPOROSIS
     Dosage: 20 UG, QD
     Dates: start: 20111102
  2. FORTEO [Suspect]
     Dosage: 20 UG, QD

REACTIONS (6)
  - ARTHRALGIA [None]
  - LOCAL SWELLING [None]
  - THYROID DISORDER [None]
  - GOITRE [None]
  - THYROID GLAND SCAN ABNORMAL [None]
  - INJECTION SITE HAEMATOMA [None]
